FAERS Safety Report 4559268-3 (Version None)
Quarter: 2005Q1

REPORT INFORMATION
  Report Type: 
  Country: None (occurrence: None)
  Receive Date: 20050124
  Receipt Date: 20041222
  Transmission Date: 20050727
  Serious: Yes (Disabling)
  Sender: FDA-Public Use
  Company Number: ES-ROCHE-390182

PATIENT
  Age: 65 Year
  Sex: Male

DRUGS (3)
  1. PEG-INTERFERON ALFA 2A (RO 25-8310) [Suspect]
     Indication: HEPATITIS C
     Route: 058
     Dates: start: 20030519, end: 20040519
  2. RIBAVIRIN [Suspect]
     Indication: HEPATITIS C
     Dosage: FREQUENCY REPORTED AS DAILY.
     Route: 048
     Dates: start: 20030519, end: 20040519
  3. NOCTAMID [Concomitant]
     Route: 048
     Dates: start: 20030821

REACTIONS (4)
  - BLINDNESS [None]
  - EYE PAIN [None]
  - MACULAR DEGENERATION [None]
  - OCULAR VASCULAR DISORDER [None]
